FAERS Safety Report 8339879 (Version 6)
Quarter: 2013Q1

REPORT INFORMATION
  Report Type: Report from Study
  Country: AU (occurrence: AU)
  Receive Date: 20120117
  Receipt Date: 20130121
  Transmission Date: 20140127
  Serious: Yes (Hospitalization)
  Sender: FDA-Public Use
  Company Number: AU-PURDUE-USA-2012-0080865

PATIENT
  Age: 56 Year
  Sex: Male
  Weight: 107 kg

DRUGS (12)
  1. PLACEBO [Suspect]
     Indication: PRODUCT USED FOR UNKNOWN INDICATION
     Dosage: 40 MCG/HR, UNK
     Route: 062
     Dates: start: 20111115
  2. PLACEBO [Suspect]
     Dosage: 30 MCG/HR, UNK
     Route: 062
     Dates: start: 20111108, end: 20111115
  3. PLACEBO [Suspect]
     Dosage: 20 MCG/HR, UNK
     Route: 062
     Dates: start: 20111103, end: 20111108
  4. PLACEBO [Suspect]
     Dosage: 10 MCG/HR, UNK
     Route: 062
     Dates: start: 20111028, end: 20111103
  5. PLACEBO [Suspect]
     Dosage: 5 MCG/HR, UNK
     Route: 062
     Dates: start: 20111018, end: 20111028
  6. ASPIRIN [Concomitant]
     Indication: PRODUCT USED FOR UNKNOWN INDICATION
     Dosage: UNK
     Dates: start: 20111231
  7. LANTUS [Concomitant]
     Indication: PRODUCT USED FOR UNKNOWN INDICATION
     Dosage: UNK
     Dates: start: 201109
  8. CYMBALTA [Concomitant]
     Indication: PRODUCT USED FOR UNKNOWN INDICATION
     Dosage: UNK
     Dates: start: 201103
  9. JANUMET [Concomitant]
     Indication: PRODUCT USED FOR UNKNOWN INDICATION
     Dosage: UNK
     Dates: start: 201001
  10. AVAPRO [Concomitant]
     Indication: PRODUCT USED FOR UNKNOWN INDICATION
     Dosage: UNK
     Dates: start: 2009
  11. LIPITOR [Concomitant]
     Indication: PRODUCT USED FOR UNKNOWN INDICATION
     Dosage: UNK
     Dates: start: 2009
  12. EFEXOR [Concomitant]
     Indication: PRODUCT USED FOR UNKNOWN INDICATION
     Dosage: UNK
     Dates: start: 2000

REACTIONS (1)
  - Angina unstable [Recovered/Resolved]
